FAERS Safety Report 23537680 (Version 2)
Quarter: 2024Q1

REPORT INFORMATION
  Report Type: Other
  Country: PL (occurrence: None)
  Receive Date: 20240219
  Receipt Date: 20240227
  Transmission Date: 20240409
  Serious: Yes (Other)
  Sender: FDA-Public Use
  Company Number: PL-ROCHE-3510566

PATIENT

DRUGS (1)
  1. TOCILIZUMAB [Suspect]
     Active Substance: TOCILIZUMAB
     Indication: Rheumatoid arthritis
     Route: 065

REACTIONS (22)
  - COVID-19 [Unknown]
  - Acute myocardial infarction [Unknown]
  - Coronary artery thrombosis [Unknown]
  - Alanine aminotransferase increased [Unknown]
  - Neutropenia [Unknown]
  - Leukopenia [Unknown]
  - Aspartate aminotransferase increased [Unknown]
  - Hypercholesterolaemia [Unknown]
  - Pruritus [Unknown]
  - Dermatitis [Unknown]
  - Rash [Unknown]
  - Dermatitis contact [Unknown]
  - Rash pruritic [Unknown]
  - Dermatitis allergic [Unknown]
  - Erythema [Unknown]
  - Rash erythematous [Unknown]
  - Contrast media allergy [Unknown]
  - Drug hypersensitivity [Unknown]
  - Rhinitis allergic [Unknown]
  - Mouth ulceration [Unknown]
  - Swelling face [Unknown]
  - Flushing [Unknown]
